FAERS Safety Report 16105109 (Version 1)
Quarter: 2019Q1

REPORT INFORMATION
  Report Type: Spontaneous
  Country: US (occurrence: US)
  Receive Date: 20190322
  Receipt Date: 20190322
  Transmission Date: 20190418
  Serious: Yes (Death, Hospitalization, Other)
  Sender: FDA-Public Use
  Company Number: US-NOVOPROD-652715

PATIENT
  Age: 58 Year
  Sex: Male

DRUGS (1)
  1. NOVOLOG [Suspect]
     Active Substance: INSULIN ASPART
     Indication: DIABETES MELLITUS
     Dosage: 30 UNIT WITH MEALS
     Route: 058

REACTIONS (6)
  - Heart valve replacement [Unknown]
  - Product dose omission [Unknown]
  - Myocardial infarction [Fatal]
  - Brain neoplasm [Fatal]
  - Extra dose administered [Unknown]
  - Hospitalisation [Unknown]

NARRATIVE: CASE EVENT DATE: 2018
